FAERS Safety Report 21440438 (Version 1)
Quarter: 2022Q4

REPORT INFORMATION
  Report Type: Spontaneous
  Country: US (occurrence: None)
  Receive Date: 20221009
  Receipt Date: 20221009
  Transmission Date: 20230112
  Serious: Yes (Disabling)
  Sender: FDA-Public Use
  Company Number: None

PATIENT
  Age: 41 Year
  Sex: Female
  Weight: 56.7 kg

DRUGS (10)
  1. CIPROFLOXACIN HYDROCHLORIDE [Suspect]
     Active Substance: CIPROFLOXACIN HYDROCHLORIDE
     Indication: Kidney infection
     Dates: start: 20220810, end: 20220816
  2. VITAMINS [Concomitant]
     Active Substance: VITAMINS
  3. MAGNESIUM [Concomitant]
     Active Substance: MAGNESIUM
  4. FISH OIL [Concomitant]
     Active Substance: FISH OIL
  5. VITAMIN D3 [Concomitant]
     Active Substance: CHOLECALCIFEROL
  6. CQ 10 [Concomitant]
  7. gluthathione [Concomitant]
  8. DIGESTIVE ENZYME [Concomitant]
  9. HERBALS\TURMERIC [Concomitant]
     Active Substance: HERBALS\TURMERIC
  10. GINGER [Concomitant]
     Active Substance: GINGER

REACTIONS (7)
  - Arthralgia [None]
  - Joint stiffness [None]
  - Arthralgia [None]
  - Gait disturbance [None]
  - Tendon pain [None]
  - Paraesthesia [None]
  - Discomfort [None]

NARRATIVE: CASE EVENT DATE: 20220819
